FAERS Safety Report 4644979-1 (Version None)
Quarter: 2005Q2

REPORT INFORMATION
  Report Type: 
  Country: None (occurrence: None)
  Receive Date: 20050422
  Receipt Date: 20050414
  Transmission Date: 20051028
  Serious: Yes (Disabling, Other)
  Sender: FDA-Public Use
  Company Number: 2005059871

PATIENT
  Age: 84 Year
  Sex: Female
  Weight: 63.5036 kg

DRUGS (7)
  1. BEXTRA [Suspect]
     Indication: BACK PAIN
     Dosage: 10 MG (10 MG), ORAL
     Route: 048
  2. DONEPEZIL HYDROCHLORIDE (DONEPEZIL HYDROCHORIDE) [Concomitant]
  3. ALL OTHER THERAPEUTIC PRODUCTS (ALL OTHER THERAPEUTIC PRODUCTS ) [Concomitant]
  4. ATENOLOL [Concomitant]
  5. LEVOTHYROXINE SODIUM [Concomitant]
  6. POTASSIUM CHLORIDE [Concomitant]
  7. ALENDRONATE SODIUM [Concomitant]

REACTIONS (7)
  - BLINDNESS UNILATERAL [None]
  - BODY HEIGHT DECREASED [None]
  - CATARACT OPERATION [None]
  - CONDITION AGGRAVATED [None]
  - DEMENTIA [None]
  - OCULAR VASCULAR DISORDER [None]
  - PROCEDURAL COMPLICATION [None]
